FAERS Safety Report 25645482 (Version 2)
Quarter: 2025Q4

REPORT INFORMATION
  Report Type: Spontaneous
  Country: GB (occurrence: GB)
  Receive Date: 20250805
  Receipt Date: 20251103
  Transmission Date: 20260117
  Serious: Yes (Other)
  Sender: MYLAN
  Company Number: GB-MYLANLABS-2025M1052676

PATIENT
  Age: 79 Year
  Sex: Female

DRUGS (16)
  1. CLOZAPINE [Suspect]
     Active Substance: CLOZAPINE
     Indication: Schizophrenia
     Dosage: UNK (100MG/250MG OF CLOZAPINE UP UNTIL 2010)
  2. CLOZAPINE [Suspect]
     Active Substance: CLOZAPINE
     Dosage: UNK (150MG/250MG)
  3. CLOZAPINE [Suspect]
     Active Substance: CLOZAPINE
     Dosage: UNK (CLOZAPINE WAS AGAIN RETITRATED TO 125MG/200MG)
  4. CLOZAPINE [Suspect]
     Active Substance: CLOZAPINE
     Dosage: UNK (75MG/200MG)
  5. CLOZAPINE [Suspect]
     Active Substance: CLOZAPINE
     Dosage: UNK (75MG/150MG)
  6. CLOZAPINE [Suspect]
     Active Substance: CLOZAPINE
     Dosage: 112.5 MILLIGRAM (GRADUALLY TITRATED UP)
  7. CLOZAPINE [Suspect]
     Active Substance: CLOZAPINE
     Dosage: 125 MILLIGRAM
  8. CLOZAPINE [Suspect]
     Active Substance: CLOZAPINE
     Dosage: UNK
  9. CLOZAPINE [Suspect]
     Active Substance: CLOZAPINE
     Dosage: 12.5 MILLIGRAM, QD (ONCE DAILY)
     Dates: start: 20250708
  10. CLOZAPINE [Suspect]
     Active Substance: CLOZAPINE
     Dosage: UNK
  11. CLOZARIL [Suspect]
     Active Substance: CLOZAPINE
     Indication: Schizophrenia
     Dosage: UNK
  12. CLOZARIL [Suspect]
     Active Substance: CLOZAPINE
     Indication: Schizoaffective disorder
     Dosage: UNK, (PROPOSED DATE OF COMMENCEMENT 30-JUL-2025)
  13. CHOLESTYRAMINE [Concomitant]
     Active Substance: CHOLESTYRAMINE
     Indication: Irritable bowel syndrome
     Dosage: 4 GRAM, TID (TID)
     Dates: start: 20241111
  14. LISINOPRIL [Concomitant]
     Active Substance: LISINOPRIL
     Indication: Hypertension
     Dosage: 5 MILLIGRAM, QD (OD)
     Dates: start: 20250301
  15. CODEINE [Concomitant]
     Active Substance: CODEINE
     Indication: Pain
     Dosage: 30 MILLIGRAM, QID (QDS)
     Dates: start: 20250411
  16. LOPERAMIDE [Concomitant]
     Active Substance: LOPERAMIDE
     Indication: Diarrhoea
     Dosage: 8 MILLIGRAM, BID (BD)
     Dates: start: 20241111

REACTIONS (3)
  - Thrombocytosis [Not Recovered/Not Resolved]
  - Neutrophilia [Unknown]
  - Leukocytosis [Unknown]

NARRATIVE: CASE EVENT DATE: 20250619
